FAERS Safety Report 6998161-3 (Version None)
Quarter: 2010Q3

REPORT INFORMATION
  Report Type: 
  Country: None (occurrence: None)
  Receive Date: 20100920
  Receipt Date: 20091028
  Transmission Date: 20110219
  Serious: No
  Sender: FDA-Public Use
  Company Number: US-ASTRAZENECA-2009SE23511

PATIENT
  Age: 62 Year
  Sex: Female

DRUGS (3)
  1. SEROQUEL [Suspect]
     Route: 048
     Dates: start: 20090501, end: 20090801
  2. SEROQUEL [Suspect]
     Route: 048
     Dates: start: 20090801
  3. SEROQUEL [Suspect]
     Route: 048
     Dates: start: 20090901

REACTIONS (2)
  - ANXIETY [None]
  - DRUG ADMINISTRATION ERROR [None]
